FAERS Safety Report 7394231-9 (Version None)
Quarter: 2011Q2

REPORT INFORMATION
  Report Type: 
  Country: None (occurrence: None)
  Receive Date: 20110405
  Receipt Date: 20110331
  Transmission Date: 20111010
  Serious: Yes (Other)
  Sender: FDA-Public Use
  Company Number: GB-PFIZER INC-2011072519

PATIENT
  Age: 38 Year
  Sex: Female
  Weight: 93 kg

DRUGS (2)
  1. CERAZETTE [Concomitant]
     Indication: CONTRACEPTION
     Dosage: 75 MG, 1X/DAY
     Route: 048
  2. CHAMPIX [Suspect]
     Indication: SMOKING CESSATION THERAPY
     Dosage: 1 MG, 2X/DAY
     Route: 048
     Dates: start: 20110203, end: 20110313

REACTIONS (3)
  - HEADACHE [None]
  - HYPOAESTHESIA FACIAL [None]
  - BEDRIDDEN [None]
